FAERS Safety Report 9736444 (Version 2)
Quarter: 2013Q4

REPORT INFORMATION
  Report Type: Spontaneous
  Country: FR (occurrence: FR)
  Receive Date: 20131206
  Receipt Date: 20131206
  Transmission Date: 20140711
  Serious: Yes (Life-Threatening, Hospitalization)
  Sender: FDA-Public Use
  Company Number: FR-PFIZER INC-2013249320

PATIENT
  Age: 45 Year
  Sex: Female
  Weight: 54 kg

DRUGS (9)
  1. SOLU-MEDROL [Suspect]
     Indication: GASTROINTESTINAL CARCINOMA
     Dosage: 120 MG, WEEKLY, 3 WEEK OUT OF 4
     Route: 042
     Dates: start: 20130813
  2. AZANTAC [Suspect]
     Indication: GASTROINTESTINAL CARCINOMA
     Dosage: 50 MG/2ML, ONCE WEEKLY, 3 WEEKS OUT OF 4
     Route: 042
     Dates: start: 20130813, end: 20130820
  3. EMEND [Suspect]
     Indication: GASTROINTESTINAL CARCINOMA
     Dosage: UNK
     Route: 048
     Dates: start: 20130313
  4. EMEND [Suspect]
     Dosage: 125MG ON DAY ONE, 80MG ON DAY 2 AND 3
     Route: 048
     Dates: start: 20130813
  5. POLARAMINE [Suspect]
     Indication: GASTROINTESTINAL CARCINOMA
     Dosage: UNK
     Route: 042
     Dates: start: 20130313
  6. POLARAMINE [Suspect]
     Dosage: 5 MG DAILY FOR 3 WEEKS OF 4
     Route: 042
     Dates: start: 20130813
  7. ZOPHREN [Suspect]
     Indication: GASTROINTESTINAL CARCINOMA
     Dosage: 8 MG, DAILY
     Route: 042
     Dates: start: 20130813
  8. TAXOL [Suspect]
     Indication: GASTROINTESTINAL CARCINOMA
     Dosage: 126 MG, DAILY
     Route: 042
     Dates: start: 20130813
  9. CARBOPLATIN [Suspect]
     Indication: GASTROINTESTINAL CARCINOMA
     Dosage: 230 MG, DAILY
     Route: 042
     Dates: start: 20130813

REACTIONS (8)
  - Oropharyngeal discomfort [Recovered/Resolved]
  - Pruritus generalised [Recovered/Resolved]
  - Feeling hot [Recovered/Resolved]
  - Pharyngitis [Unknown]
  - Pruritus generalised [Recovered/Resolved]
  - Feeling hot [Recovered/Resolved]
  - Respiratory disorder [Recovered/Resolved]
  - Generalised erythema [Recovered/Resolved]
